FAERS Safety Report 8118136-0 (Version None)
Quarter: 2012Q1

REPORT INFORMATION
  Report Type: 
  Country: None (occurrence: None)
  Receive Date: 20120207
  Receipt Date: 20120130
  Transmission Date: 20120608
  Serious: Yes (Other)
  Sender: FDA-Public Use
  Company Number: MX-BRISTOL-MYERS SQUIBB COMPANY-16375768

PATIENT
  Age: 71 Year
  Sex: Female

DRUGS (1)
  1. IRBESARTAN [Suspect]
     Route: 048

REACTIONS (2)
  - LOWER LIMB FRACTURE [None]
  - FALL [None]
